FAERS Safety Report 23618899 (Version 2)
Quarter: 2024Q1

REPORT INFORMATION
  Report Type: Spontaneous
  Country: AT (occurrence: AT)
  Receive Date: 20240311
  Receipt Date: 20240325
  Transmission Date: 20240410
  Serious: Yes (Other)
  Sender: FDA-Public Use
  Company Number: AT-JNJFOC-20231015347

PATIENT
  Age: 61 Year
  Sex: Female

DRUGS (11)
  1. DEXAMETHASONE [Suspect]
     Active Substance: DEXAMETHASONE
     Indication: Plasma cell myeloma
     Dosage: UNK?ROUTE OF ADMIN: UNKNOWN?FORM OF ADMIN: UNKNOWN
     Dates: start: 20221215
  2. DEXAMETHASONE [Suspect]
     Active Substance: DEXAMETHASONE
     Dosage: UNK?ROUTE OF ADMIN: UNKNOWN?FORM OF ADMIN: UNKNOWN
     Dates: start: 202302, end: 202308
  3. LENALIDOMIDE [Suspect]
     Active Substance: LENALIDOMIDE
     Indication: Plasma cell myeloma
     Dosage: UNK?ROA: UNKNOWN?FOA: UNKNOWN
     Dates: start: 20221215
  4. THALIDOMIDE [Suspect]
     Active Substance: THALIDOMIDE
     Indication: Plasma cell myeloma
     Dosage: UNK?FOA: UNKNOWN?ROA: UNKNOWN
     Dates: start: 202302, end: 202308
  5. DARZALEX [Suspect]
     Active Substance: DARATUMUMAB
     Indication: Plasma cell myeloma
     Dosage: UNK?FOA: CONCENTRATE FOR SOLUTION FOR INFUSION?ROA: UNKNOWN
     Dates: start: 20221215
  6. DARZALEX [Suspect]
     Active Substance: DARATUMUMAB
     Dosage: UNK?FOA: CONCENTRATE FOR SOLUTION FOR INFUSION?ROA: UNKNOWN
     Dates: start: 202302, end: 202308
  7. VELCADE [Suspect]
     Active Substance: BORTEZOMIB
     Indication: Plasma cell myeloma
     Dosage: UNK?FOA: INJECTION?ROA: UNKNOWN
     Dates: start: 20221215
  8. VELCADE [Suspect]
     Active Substance: BORTEZOMIB
     Dosage: UNK?FOA: INJECTION?ROA: UNKNOWN
     Dates: start: 202302, end: 202308
  9. MELPHALAN [Suspect]
     Active Substance: MELPHALAN
     Indication: Plasma cell myeloma
     Dosage: 200 MILLIGRAM/SQ. METER?ROA: UNKNOWN
  10. CYCLOPHOSPHAMIDE [Suspect]
     Active Substance: CYCLOPHOSPHAMIDE
     Indication: Plasma cell myeloma
     Dosage: FOA: UNKNOWN?ROA: INTRAVENOUS
  11. CYCLOPHOSPHAMIDE [Suspect]
     Active Substance: CYCLOPHOSPHAMIDE
     Dosage: 2 GRAM?ROA: UNKNOWN
     Route: 065

REACTIONS (5)
  - Polyneuropathy [Recovered/Resolved]
  - Acute kidney injury [Recovered/Resolved]
  - Rash [Recovered/Resolved]
  - COVID-19 [Unknown]
  - Intentional product use issue [Unknown]
